FAERS Safety Report 10015815 (Version 1)
Quarter: 2014Q1

REPORT INFORMATION
  Report Type: Report from Study
  Country: TW (occurrence: TW)
  Receive Date: 20140317
  Receipt Date: 20140317
  Transmission Date: 20141002
  Serious: Yes (Other)
  Sender: FDA-Public Use
  Company Number: TW-US-EMD SERONO, INC.-7275831

PATIENT
  Age: 14 Year
  Sex: Female
  Weight: 48 kg

DRUGS (1)
  1. SAIZEN [Suspect]
     Indication: PRODUCT USED FOR UNKNOWN INDICATION
     Dates: start: 20081021

REACTIONS (1)
  - Brain neoplasm [Unknown]
